FAERS Safety Report 10241335 (Version 2)
Quarter: 2014Q2

REPORT INFORMATION
  Report Type: Spontaneous
  Country: US (occurrence: US)
  Receive Date: 20140617
  Receipt Date: 20140624
  Transmission Date: 20141212
  Serious: No
  Sender: FDA-Public Use
  Company Number: US-PFIZER INC-2014161403

PATIENT
  Age: 70 Year
  Sex: Male

DRUGS (11)
  1. SUTENT [Suspect]
     Indication: RENAL CANCER
     Dosage: 12.5 MG, CYCLIC (3 CAPSULES 12.5 MG 4 WEEKS ON, 2 WEEKS OFF)
     Route: 048
     Dates: start: 20120507
  2. SUTENT [Suspect]
     Indication: CLEAR CELL RENAL CELL CARCINOMA
     Dosage: 12.5 MG, UNK
     Route: 048
     Dates: start: 20130125
  3. LISINOPRIL [Concomitant]
     Dosage: UNK
  4. OMEPRAZOLE [Concomitant]
     Dosage: 20 MG, 1X/DAY
  5. BYSTOLIC [Concomitant]
     Dosage: UNK
  6. CARVEDILOL [Concomitant]
     Dosage: UNK, 2X/DAY (6.25 MG, TAKE 1/2 TABLET 2X DAILY)
  7. AMIODARONE HYDROCHLORIDE [Concomitant]
     Dosage: UNK, 1X/DAY (200MG, TAKE 1/2 TABLET 1XDAILY)
  8. BAYER ASPIRIN [Concomitant]
     Dosage: 81 MG, UNK (TAKE 1 EVERY OTHER DAY)
  9. DIALYVITE 800 ULTRA D [Concomitant]
     Dosage: UNK, DAILY (TAKE 1 TABLET DAILY)
  10. VITAMIN B COMPLEX WITH FOLIC ACID [Concomitant]
     Dosage: UNK, (TAKE 1 TABLET DAILY)
  11. CALCIUM ACETATE [Concomitant]
     Dosage: 667 MG, UNK (TAKE 3 WITH SNACKS)

REACTIONS (5)
  - Petechiae [Unknown]
  - Hypotension [Unknown]
  - Nausea [Unknown]
  - Pain [Unknown]
  - Hypersensitivity [Unknown]
